FAERS Safety Report 22246135 (Version 1)
Quarter: 2023Q2

REPORT INFORMATION
  Report Type: Spontaneous
  Country: JP (occurrence: JP)
  Receive Date: 20230424
  Receipt Date: 20230424
  Transmission Date: 20230722
  Serious: Yes (Other)
  Sender: FDA-Public Use
  Company Number: JP-JNJFOC-20230444191

PATIENT

DRUGS (5)
  1. VELCADE [Suspect]
     Active Substance: BORTEZOMIB
     Indication: Mantle cell lymphoma
     Dosage: DOSE UNKNOWN, 2 COURSE
     Route: 065
     Dates: start: 202212
  2. RITUXAN [Concomitant]
     Active Substance: RITUXIMAB
     Indication: Mantle cell lymphoma
     Dosage: DOSE UNKNOWN, 2 COURSE
     Route: 065
     Dates: start: 202212
  3. CYCLOPHOSPHAMIDE [Concomitant]
     Active Substance: CYCLOPHOSPHAMIDE
     Indication: Mantle cell lymphoma
     Dosage: DOSE UNKNOWN, 2 COURSE
     Route: 065
     Dates: start: 202212
  4. DOXORUBICIN HYDROCHLORIDE [Concomitant]
     Active Substance: DOXORUBICIN HYDROCHLORIDE
     Indication: Mantle cell lymphoma
     Dosage: DOSE UNKNOWN, 2 COURSE
     Route: 065
     Dates: start: 202212
  5. PREDONINE [Concomitant]
     Active Substance: PREDNISOLONE
     Indication: Mantle cell lymphoma
     Dosage: DOSE UNKNOWN, 2 COURSE
     Route: 065
     Dates: start: 202212

REACTIONS (1)
  - Arrhythmia [Unknown]
